FAERS Safety Report 9776066 (Version 2)
Quarter: 2014Q2

REPORT INFORMATION
  Report Type: Spontaneous
  Country: DE (occurrence: None)
  Receive Date: 20131219
  Receipt Date: 20140411
  Transmission Date: 20141212
  Serious: Yes (Other)
  Sender: FDA-Public Use
  Company Number: 1312-1577

PATIENT
  Age: 62 Year
  Sex: Male

DRUGS (5)
  1. EYLEA (AFLIBERCEPT) (SOLUTION FOR INJECTION) (AFLIBERCEPT) [Suspect]
     Indication: AGE-RELATED MACULAR DEGENERATION
     Dates: start: 20131203
  2. INSULIN (INSULIN) [Concomitant]
  3. ZOCOR (SIMVASTATIN) [Concomitant]
  4. BETADINE /00080001/ (POVIDONE-IODINE) [Concomitant]
  5. TOBREX (TOBRAMYCIN) [Concomitant]

REACTIONS (2)
  - Ocular hypertension [None]
  - Blindness transient [None]
